FAERS Safety Report 23137973 (Version 1)
Quarter: 2023Q4

REPORT INFORMATION
  Report Type: Spontaneous
  Country: US (occurrence: US)
  Receive Date: 20231102
  Receipt Date: 20231102
  Transmission Date: 20240109
  Serious: Yes (Hospitalization, Other)
  Sender: FDA-Public Use
  Company Number: US-MLMSERVICE-20231017-4605678-1

PATIENT
  Age: 16 Year
  Sex: Male

DRUGS (16)
  1. ALLOPURINOL [Interacting]
     Active Substance: ALLOPURINOL
     Indication: B-cell type acute leukaemia
  2. METHOTREXATE [Interacting]
     Active Substance: METHOTREXATE
     Indication: B-cell type acute leukaemia
     Dosage: STANDARD DOSES
  3. MERCAPTOPURINE [Interacting]
     Active Substance: MERCAPTOPURINE
     Indication: Ocular icterus
     Dosage: STANDARD DOSES
  4. PREDNISONE [Concomitant]
     Active Substance: PREDNISONE
     Indication: B-cell type acute leukaemia
     Dosage: STANDARD DOSES
  5. VINCRISTINE [Concomitant]
     Active Substance: VINCRISTINE
     Indication: Hyperbilirubinaemia
     Dosage: STANDARD DOSES
  6. MERCAPTOPURINE [Interacting]
     Active Substance: MERCAPTOPURINE
     Indication: Ocular icterus
     Dosage: REDUCED BY 50 %
  7. MERCAPTOPURINE [Interacting]
     Active Substance: MERCAPTOPURINE
     Indication: Hyperbilirubinaemia
     Dosage: STANDARD DOSES
  8. METHOTREXATE [Interacting]
     Active Substance: METHOTREXATE
     Indication: Hyperbilirubinaemia
     Dosage: STANDARD DOSES
  9. PREDNISONE [Concomitant]
     Active Substance: PREDNISONE
     Indication: Hypertransaminasaemia
     Dosage: STANDARD DOSES
  10. PREDNISONE [Concomitant]
     Active Substance: PREDNISONE
     Indication: Ocular icterus
     Dosage: STANDARD DOSES
  11. MERCAPTOPURINE [Interacting]
     Active Substance: MERCAPTOPURINE
     Indication: B-cell type acute leukaemia
     Dosage: STANDARD DOSES
  12. MERCAPTOPURINE [Interacting]
     Active Substance: MERCAPTOPURINE
     Indication: Hypertransaminasaemia
     Dosage: STANDARD DOSES
  13. METHOTREXATE [Interacting]
     Active Substance: METHOTREXATE
     Indication: Ocular icterus
     Dosage: STANDARD DOSES
  14. METHOTREXATE [Interacting]
     Active Substance: METHOTREXATE
     Indication: Hypertransaminasaemia
     Dosage: STANDARD DOSES
  15. PREDNISONE [Concomitant]
     Active Substance: PREDNISONE
     Indication: Hyperbilirubinaemia
     Dosage: STANDARD DOSES
  16. VINCRISTINE [Concomitant]
     Active Substance: VINCRISTINE
     Indication: Hypertransaminasaemia
     Dosage: STANDARD DOSES

REACTIONS (2)
  - Anaemia megaloblastic [Unknown]
  - Drug interaction [Unknown]
